FAERS Safety Report 4869202-4 (Version None)
Quarter: 2005Q4

REPORT INFORMATION
  Report Type: 
  Country: None (occurrence: None)
  Receive Date: 20051230
  Receipt Date: 20030910
  Transmission Date: 20060501
  Serious: Yes (Life-Threatening, Hospitalization, Other)
  Sender: FDA-Public Use
  Company Number: PT-AMGEN-UK047103

PATIENT
  Sex: Male

DRUGS (9)
  1. CINACALCET [Suspect]
     Indication: HYPERPARATHYROIDISM SECONDARY
     Route: 048
     Dates: start: 20030416, end: 20030906
  2. ARANESP [Concomitant]
     Route: 065
     Dates: start: 20030512
  3. FOLIC ACID [Concomitant]
     Route: 065
     Dates: start: 19991203
  4. BECOZYME [Concomitant]
     Route: 065
     Dates: start: 19991203
  5. ZANTAC [Concomitant]
     Route: 065
     Dates: start: 20010829
  6. WARFARIN SODIUM [Concomitant]
     Route: 065
     Dates: start: 20020924
  7. IBUSTRIN [Concomitant]
     Route: 065
     Dates: start: 19991203
  8. CALCIUM CARBONATE [Concomitant]
     Route: 065
     Dates: start: 20020101
  9. VENOFER [Concomitant]
     Route: 065
     Dates: start: 20021202

REACTIONS (3)
  - CLOSTRIDIUM COLITIS [None]
  - GASTRIC HAEMORRHAGE [None]
  - PANCREATITIS [None]
